FAERS Safety Report 7722096-1 (Version None)
Quarter: 2011Q3

REPORT INFORMATION
  Report Type: 
  Country: None (occurrence: None)
  Receive Date: 20110831
  Receipt Date: 20110822
  Transmission Date: 20111222
  Serious: Yes (Hospitalization, Disabling)
  Sender: FDA-Public Use
  Company Number: BR-ASTRAZENECA-2011SE50545

PATIENT
  Age: 83 Year
  Sex: Male
  Weight: 64 kg

DRUGS (10)
  1. SEROQUEL [Suspect]
     Route: 048
     Dates: start: 20060101, end: 20070101
  2. SEROQUEL [Suspect]
     Dosage: UNKNOWN DOSE ONCE DAILY
     Route: 048
     Dates: start: 20070101
  3. FLUOXETINE [Concomitant]
     Indication: DEPRESSION
  4. SEROQUEL [Suspect]
     Indication: PARKINSON'S DISEASE
     Dosage: UNKNOWN DOSE ONCE DAILY
     Route: 048
     Dates: start: 20010101, end: 20060101
  5. PROLOPA [Concomitant]
     Dosage: PROLOPA HBS 150 MG
     Route: 048
     Dates: start: 20010101
  6. PROLOPA [Concomitant]
     Dosage: PROLOPA DISPERSIBLE 150 MG
     Route: 048
     Dates: start: 20010101
  7. ROHYPNOL [Concomitant]
     Indication: INSOMNIA
     Route: 048
     Dates: start: 20010101
  8. PROLOPA [Concomitant]
     Indication: PARKINSON'S DISEASE
     Route: 048
     Dates: start: 20010101
  9. DOXAZOSIN MESYLATE [Concomitant]
     Indication: PROSTATOMEGALY
     Route: 048
  10. FINASTERIDA [Concomitant]
     Indication: PROSTATOMEGALY
     Route: 048

REACTIONS (6)
  - WEIGHT DECREASED [None]
  - OFF LABEL USE [None]
  - FALL [None]
  - BALANCE DISORDER [None]
  - THERAPEUTIC RESPONSE UNEXPECTED [None]
  - FEMUR FRACTURE [None]
